FAERS Safety Report 26143792 (Version 1)
Quarter: 2025Q4

REPORT INFORMATION
  Report Type: Spontaneous
  Country: EU (occurrence: EU)
  Receive Date: 20251211
  Receipt Date: 20251211
  Transmission Date: 20260117
  Serious: Yes (Other)
  Sender: TEVA
  Company Number: None

PATIENT
  Age: 64 Year
  Sex: Male

DRUGS (9)
  1. AMOXICILLIN [Suspect]
     Active Substance: AMOXICILLIN
     Indication: Product used for unknown indication
     Dosage: AMOXICILLIN (108A)
     Route: 048
     Dates: start: 20251010, end: 20251017
  2. BECLOMETHASONE DIPROPIONATE\FORMOTEROL FUMARATE\GLYCOPYRROLATE [Concomitant]
     Active Substance: BECLOMETHASONE DIPROPIONATE\FORMOTEROL FUMARATE\GLYCOPYRROLATE
     Indication: Product used for unknown indication
     Dosage: 87 MICROGRAMS/5 MICROGRAMS/9 MICROGRAMS, 1 INHALER OF 120 ACTUATIONS
     Route: 065
     Dates: start: 20240220
  3. QUETIAPINE CINFA [Concomitant]
     Indication: Product used for unknown indication
     Dosage: FILM-COATED TABLETS EFG, 60 TABLETS
     Route: 048
     Dates: start: 20250211
  4. MONTELUKAST CINFA [Concomitant]
     Indication: Product used for unknown indication
     Dosage: FILM-COATED TABLETS EFG, 28 TABLETS
     Route: 048
     Dates: start: 20241204
  5. ATORVASTATIN CALCIUM [Concomitant]
     Active Substance: ATORVASTATIN CALCIUM
     Indication: Product used for unknown indication
     Dosage: FILM-COATED TABLETS EFG, 28 TABLETS
     Route: 048
     Dates: start: 20240220
  6. TRILEPTAL [Concomitant]
     Active Substance: OXCARBAZEPINE
     Indication: Product used for unknown indication
     Dosage: 100 TABLETS
     Route: 048
     Dates: start: 20240603
  7. AMLODIPINO CINFA [Concomitant]
     Indication: Product used for unknown indication
     Dosage: 30 TABLETS
     Route: 048
     Dates: start: 20250613
  8. FUROSEMIDE [Concomitant]
     Active Substance: FUROSEMIDE
     Indication: Product used for unknown indication
     Route: 048
  9. TRYPTIZOL [Concomitant]
     Active Substance: AMITRIPTYLINE HYDROCHLORIDE
     Indication: Product used for unknown indication
     Dosage: 24 TABLETS
     Route: 048
     Dates: start: 20240322

REACTIONS (1)
  - Abdominal pain upper [Recovered/Resolved]

NARRATIVE: CASE EVENT DATE: 20251010
